FAERS Safety Report 15168364 (Version 2)
Quarter: 2018Q3

REPORT INFORMATION
  Report Type: Spontaneous
  Country: NL (occurrence: NL)
  Receive Date: 20180719
  Receipt Date: 20180801
  Transmission Date: 20181010
  Serious: Yes (Other)
  Sender: FDA-Public Use
  Company Number: NL-ALLERGAN-1835900US

PATIENT
  Age: 52 Year
  Sex: Female
  Weight: 90 kg

DRUGS (4)
  1. OXAZEPAM. [Concomitant]
     Active Substance: OXAZEPAM
     Indication: PRODUCT USED FOR UNKNOWN INDICATION
     Dosage: 1 DF, Q2WEEKS
     Route: 065
  2. TEMAZEPAM. [Concomitant]
     Active Substance: TEMAZEPAM
     Indication: PRODUCT USED FOR UNKNOWN INDICATION
     Dosage: 1 GTT, Q2WEEKS
     Route: 065
  3. CITALOPRAM HYDROBROMIDE ? BP [Suspect]
     Active Substance: CITALOPRAM HYDROBROMIDE
     Indication: BURNOUT SYNDROME
     Dosage: 8 GTT, QD
     Route: 048
     Dates: start: 2005, end: 20140507
  4. DICLOFENAC SODIUM. [Concomitant]
     Active Substance: DICLOFENAC SODIUM
     Indication: MIGRAINE
     Dosage: 50 MG, Q MONTH
     Route: 065
     Dates: start: 2001

REACTIONS (4)
  - Vulvovaginal dryness [Recovered/Resolved with Sequelae]
  - Female orgasmic disorder [Recovered/Resolved with Sequelae]
  - Product use in unapproved indication [Unknown]
  - Loss of libido [Recovered/Resolved with Sequelae]

NARRATIVE: CASE EVENT DATE: 2005
